FAERS Safety Report 8771941 (Version 1)
Quarter: 2012Q4

REPORT INFORMATION
  Report Type: Report from Study
  Country: CA (occurrence: CA)
  Receive Date: 20120906
  Receipt Date: 20120906
  Transmission Date: 20130627
  Serious: Yes (Other)
  Sender: FDA-Public Use
  Company Number: CA-JNJFOC-20120813100

PATIENT
  Sex: Female

DRUGS (8)
  1. REMICADE [Suspect]
     Indication: CROHN^S DISEASE
     Dosage: dosing interval: 6-8 weeks
     Route: 042
     Dates: start: 20060920
  2. IMURAN [Concomitant]
     Route: 065
  3. COLESTID [Concomitant]
     Route: 065
  4. IMOVANE [Concomitant]
     Route: 065
  5. ESTROGEN [Concomitant]
     Route: 065
  6. PROGESTERONE [Concomitant]
     Route: 065
  7. FOLIC ACID [Concomitant]
     Route: 065
  8. ANTI HYPERTENSIVE MEDICATION [Concomitant]
     Indication: HYPERTENSION
     Route: 065

REACTIONS (1)
  - Thyroid cyst [Unknown]
